FAERS Safety Report 22054477 (Version 4)
Quarter: 2023Q2

REPORT INFORMATION
  Report Type: Spontaneous
  Country: US (occurrence: US)
  Receive Date: 20230302
  Receipt Date: 20230621
  Transmission Date: 20230722
  Serious: No
  Sender: FDA-Public Use
  Company Number: US-SA-SAC20230301000071

PATIENT
  Age: 57 Year
  Sex: Female

DRUGS (2)
  1. DUPIXENT [Suspect]
     Active Substance: DUPILUMAB
     Dosage: 600 MG, 1X
     Route: 065
  2. DUPIXENT [Suspect]
     Active Substance: DUPILUMAB
     Dosage: 300 MG, QOW
     Route: 058
     Dates: start: 2023

REACTIONS (11)
  - Psoriasis [Unknown]
  - Haemorrhoids [Not Recovered/Not Resolved]
  - Fungal infection [Not Recovered/Not Resolved]
  - Sensitive skin [Unknown]
  - Dermatitis allergic [Unknown]
  - Scratch [Unknown]
  - Skin burning sensation [Unknown]
  - Hypersensitivity [Unknown]
  - Rash vesicular [Unknown]
  - Dry eye [Unknown]
  - Rash [Not Recovered/Not Resolved]
